FAERS Safety Report 11001466 (Version 1)
Quarter: 2015Q2

REPORT INFORMATION
  Report Type: Spontaneous
  Country: CA (occurrence: CA)
  Receive Date: 20150408
  Receipt Date: 20150408
  Transmission Date: 20150821
  Serious: Yes (Hospitalization, Disabling)
  Sender: FDA-Public Use
  Company Number: CA-TEVA-553231ACC

PATIENT
  Age: 88 Year
  Sex: Female
  Weight: 69 kg

DRUGS (16)
  1. LIPITOR [Concomitant]
     Active Substance: ATORVASTATIN CALCIUM
     Dosage: UNKNOWN FORM OF STRENGTH
     Route: 065
  2. SENOKOT [Concomitant]
     Active Substance: SENNOSIDES
     Dosage: UNKNOWN FORM OF STRENGTH
     Route: 065
  3. SYNTHROID [Concomitant]
     Active Substance: LEVOTHYROXINE SODIUM
     Dosage: UNKNOWN FORM OF STRENGTH
     Route: 065
  4. XARELTO [Concomitant]
     Active Substance: RIVAROXABAN
     Dosage: UNKNOWN FORM OF STRENGTH
     Route: 065
  5. COLACE [Concomitant]
     Active Substance: DOCUSATE SODIUM
     Dosage: UNKNOWN FORM OF STRENGTH
     Route: 065
  6. MONOCOR - TAB 5MG [Concomitant]
     Route: 065
  7. SUPEUDOL [Concomitant]
     Active Substance: OXYCODONE HYDROCHLORIDE
     Dosage: UNKNOWN FORM OF STRENGTH
     Route: 065
  8. COUMADIN [Concomitant]
     Active Substance: WARFARIN SODIUM
     Dosage: UNKNOWN FORM OF STRENGTH
     Route: 065
  9. MICARDIS PLUS [Concomitant]
     Active Substance: HYDROCHLOROTHIAZIDE\TELMISARTAN
     Dosage: UNKNOWN FORM OF STRENGTH
     Route: 065
  10. PANTOLOC [Concomitant]
     Active Substance: PANTOPRAZOLE SODIUM
     Dosage: UNKNOWN FORM OF STRENGTH
     Route: 065
  11. VITAMIN D [Concomitant]
     Active Substance: CHOLECALCIFEROL
     Dosage: UNKNOWN FORM OF STRENGTH
     Route: 065
  12. CALCIUM [Concomitant]
     Active Substance: CALCIUM
     Dosage: UNKNOWN FORM OF STRENGTH
     Route: 065
  13. TYLENOL [Concomitant]
     Active Substance: ACETAMINOPHEN
     Dosage: UNKNOWN FORM OF STRENGTH
     Route: 065
  14. NITROFURANTOIN. [Suspect]
     Active Substance: NITROFURANTOIN
     Indication: CYSTITIS
     Dosage: 100 MILLIGRAM DAILY;
     Route: 048
  15. BRICANYL [Concomitant]
     Active Substance: TERBUTALINE SULFATE
     Dosage: UNKNOWN FORM OF STRENGTH
     Route: 065
  16. PRADAXA [Concomitant]
     Active Substance: DABIGATRAN ETEXILATE MESYLATE
     Dosage: UNKNOWN FORM OF STRENGTH
     Route: 065

REACTIONS (5)
  - Immunoglobulins increased [Unknown]
  - Lung disorder [Unknown]
  - Cough [Unknown]
  - Hepatic enzyme increased [Unknown]
  - Lung infiltration [Unknown]
